FAERS Safety Report 22887748 (Version 3)
Quarter: 2023Q4

REPORT INFORMATION
  Report Type: Spontaneous
  Country: JP (occurrence: None)
  Receive Date: 20230831
  Receipt Date: 20231009
  Transmission Date: 20240109
  Serious: Yes (Hospitalization)
  Sender: FDA-Public Use
  Company Number: JP-Orion Corporation ORION PHARMA-ENTC2023-0163

PATIENT
  Age: 81 Year
  Sex: Female

DRUGS (2)
  1. STALEVO [Suspect]
     Active Substance: CARBIDOPA\ENTACAPONE\LEVODOPA
     Indication: Parkinson^s disease
     Dosage: CARBIDOPA: UNKNOWN/ENTACAPONE: 100MG/LEVODOPA: 50MG
  2. STALEVO [Suspect]
     Active Substance: CARBIDOPA\ENTACAPONE\LEVODOPA
     Dosage: CARBIDOPA: UNKNOWN/ENTACAPONE: 100MG/LEVODOPA: 50MG

REACTIONS (1)
  - Ileus [Recovered/Resolved]
